FAERS Safety Report 4516866-0 (Version None)
Quarter: 2004Q4

REPORT INFORMATION
  Report Type: 
  Country: None (occurrence: None)
  Receive Date: 20041202
  Receipt Date: 20041123
  Transmission Date: 20050328
  Serious: Yes (Other)
  Sender: FDA-Public Use
  Company Number: PHRM2004FR03425

PATIENT
  Age: 75 Year
  Sex: Female
  Weight: 45 kg

DRUGS (2)
  1. PARLODEL [Suspect]
     Indication: PARKINSON'S DISEASE
     Dosage: 5 MG, TID
     Route: 048
     Dates: start: 19970101
  2. MODOPAR [Concomitant]
     Indication: PARKINSON'S DISEASE
     Dosage: UNK, UNK
     Route: 048

REACTIONS (8)
  - AORTIC VALVE INCOMPETENCE [None]
  - BIOPSY KIDNEY ABNORMAL [None]
  - DIALYSIS [None]
  - DYSPNOEA [None]
  - GENERALISED OEDEMA [None]
  - NEPHROTIC SYNDROME [None]
  - PLEURAL EFFUSION [None]
  - RENAL FAILURE [None]
